FAERS Safety Report 16686401 (Version 3)
Quarter: 2022Q1

REPORT INFORMATION
  Report Type: Report from Study
  Country: CN (occurrence: None)
  Receive Date: 20190809
  Receipt Date: 20220222
  Transmission Date: 20220423
  Serious: Yes (Death)
  Sender: FDA-Public Use
  Company Number: CN-ROCHE-2373583

PATIENT
  Age: 68 Year
  Sex: Female
  Weight: 70 kg

DRUGS (11)
  1. PLACEBO [Suspect]
     Active Substance: UNSPECIFIED INGREDIENT
     Indication: HER2 positive breast cancer
     Dosage: ON 26/FEB/2018, SHE RECEIVED THE MOST RECENT DOSE OF PLACEBO PRIOR TO SAE (SERIOUS ADVERSE EVENT) ON
     Route: 042
     Dates: start: 20161220
  2. TRASTUZUMAB [Suspect]
     Active Substance: TRASTUZUMAB
     Indication: HER2 positive breast cancer
     Dosage: LOADING DOSE
     Route: 042
     Dates: start: 20161220
  3. TRASTUZUMAB [Suspect]
     Active Substance: TRASTUZUMAB
     Dosage: ON 26/FEB/2018, SHE RECEIVED THE MOST RECENT DOSE (420 MG) OF TRASTUZUMAB PRIOR TO SAE (SERIOUS ADVE
     Route: 042
  4. DOCETAXEL [Suspect]
     Active Substance: DOCETAXEL
     Indication: HER2 positive breast cancer
     Dosage: ON 15/FEB/2017, SHE RECEIVED THE MOST RECENT DOSE (129 MG) OF DOCETAXEL PRIOR TO AE (ADVERSE EVENT)
     Route: 042
     Dates: start: 20161220
  5. FLUOROURACIL [Suspect]
     Active Substance: FLUOROURACIL
     Indication: HER2 positive breast cancer
     Dosage: ON 25/MAY/2017, SHE RECEIVED THE MOST RECENT DOSE (860 MG) OF FLUOROURACIL PRIOR TO AE (ADVERSE EVEN
     Route: 042
     Dates: start: 20170411
  6. EPIRUBICIN HYDROCHLORIDE [Suspect]
     Active Substance: EPIRUBICIN HYDROCHLORIDE
     Indication: HER2 positive breast cancer
     Dosage: ON 26/MAY/2017, SHE RECEIVED THE MOST RECENT DOSE (154 MG) OF EPIRUBICIN HYDROCHLORIDE PRIOR TO AE (
     Route: 042
     Dates: start: 20170411
  7. CYCLOPHOSPHAMIDE [Suspect]
     Active Substance: CYCLOPHOSPHAMIDE
     Indication: HER2 positive breast cancer
     Dosage: ON 26/MAY/2017, SHE RECEIVED THE MOST RECENT DOSE (860 MG) OF CYCLOPHOSPHAMIDE PRIOR TO AE (ADVERSE
     Route: 042
     Dates: start: 20170411
  8. LEVAMLODIPINE BESYLATE [Concomitant]
     Active Substance: LEVAMLODIPINE BESYLATE
     Indication: Hypertension
     Dates: start: 201502
  9. INSULIN HUMAN [Concomitant]
     Active Substance: INSULIN HUMAN
     Dates: start: 201504
  10. ALFACALCIDOL [Concomitant]
     Active Substance: ALFACALCIDOL
     Indication: Mineral supplementation
     Dates: start: 20170706
  11. LETROZOLE [Concomitant]
     Active Substance: LETROZOLE
     Indication: Hormone therapy
     Dates: start: 20170616

REACTIONS (1)
  - Sudden death [Fatal]

NARRATIVE: CASE EVENT DATE: 20190601
